FAERS Safety Report 7736063-5 (Version None)
Quarter: 2011Q3

REPORT INFORMATION
  Report Type: 
  Country: None (occurrence: None)
  Receive Date: 20110908
  Receipt Date: 20110826
  Transmission Date: 20111222
  Serious: No
  Sender: FDA-Public Use
  Company Number: FR-JNJFOC-20110703703

PATIENT
  Sex: Female
  Weight: 54 kg

DRUGS (1)
  1. DURAGESIC-100 [Suspect]
     Indication: PAIN
     Route: 062
     Dates: start: 20110711

REACTIONS (4)
  - DRUG INEFFECTIVE [None]
  - WRONG TECHNIQUE IN DRUG USAGE PROCESS [None]
  - PRODUCT ADHESION ISSUE [None]
  - PAIN [None]
